FAERS Safety Report 6530675-2 (Version None)
Quarter: 2010Q1

REPORT INFORMATION
  Report Type: 
  Country: None (occurrence: None)
  Receive Date: 20100108
  Receipt Date: 20090225
  Transmission Date: 20100710
  Serious: No
  Sender: FDA-Public Use
  Company Number: A0756809A

PATIENT
  Age: 54 Year
  Sex: Male

DRUGS (5)
  1. LOVAZA [Suspect]
     Route: 048
     Dates: start: 20060301
  2. GLUCOPHAGE [Concomitant]
  3. LISINOPRIL [Concomitant]
  4. VERAPAMIL [Concomitant]
  5. WELCHOL [Concomitant]

REACTIONS (3)
  - DYSGEUSIA [None]
  - NAUSEA [None]
  - PRODUCT QUALITY ISSUE [None]
